FAERS Safety Report 25664520 (Version 1)
Quarter: 2025Q3

REPORT INFORMATION
  Report Type: Spontaneous
  Country: CA (occurrence: None)
  Receive Date: 20250811
  Receipt Date: 20250811
  Transmission Date: 20251021
  Serious: Yes (Hospitalization, Other)
  Sender: ORION
  Company Number: CA-Orion Corporation ORION PHARMA-TREX2025-0130

PATIENT
  Age: 55 Year
  Sex: Male
  Weight: 117 kg

DRUGS (1)
  1. METHOTREXATE [Suspect]
     Active Substance: METHOTREXATE
     Indication: Product used for unknown indication

REACTIONS (10)
  - Oropharyngeal pain [Recovered/Resolved]
  - Mouth ulceration [Recovered/Resolved]
  - Rash [Recovered/Resolved]
  - Epiglottitis [Recovered/Resolved]
  - Obstructive airways disorder [Recovered/Resolved]
  - Mucosal inflammation [Recovered/Resolved]
  - Respiratory tract oedema [Recovered/Resolved]
  - Endotracheal intubation [Recovered/Resolved]
  - Vomiting [Recovered/Resolved]
  - Nausea [Recovered/Resolved]
